FAERS Safety Report 6912494-8 (Version None)
Quarter: 2010Q3

REPORT INFORMATION
  Report Type: 
  Country: None (occurrence: None)
  Receive Date: 20100806
  Receipt Date: 20080617
  Transmission Date: 20110219
  Serious: Yes (Other)
  Sender: FDA-Public Use
  Company Number: US-PFIZER INC-2008042871

PATIENT
  Age: 37 Year
  Sex: Male
  Weight: 83 kg

DRUGS (1)
  1. VFEND [Suspect]
     Indication: COCCIDIOIDOMYCOSIS
     Route: 048

REACTIONS (1)
  - PULMONARY EMBOLISM [None]
